FAERS Safety Report 20038818 (Version 1)
Quarter: 2021Q4

REPORT INFORMATION
  Report Type: Report from Study
  Country: ES (occurrence: ES)
  Receive Date: 20211105
  Receipt Date: 20211105
  Transmission Date: 20220303
  Serious: Yes (Hospitalization)
  Sender: FDA-Public Use
  Company Number: None

PATIENT
  Age: 70 Year
  Sex: Male

DRUGS (11)
  1. EPLERENONE [Suspect]
     Active Substance: EPLERENONE
     Dosage: 1 DF, 1X/DAY (1 TABLET PER DAY)
     Route: 048
     Dates: start: 20210405, end: 20210504
  2. AMLODIPINE, VALSARTAN AND HYDROCHLOROTHIAZIDE [Suspect]
     Active Substance: AMLODIPINE BESYLATE\HYDROCHLOROTHIAZIDE\VALSARTAN
     Indication: Hypertension
     Dosage: 1 DF, 1X/DAY (ONE TABLET PER DAY)
     Route: 048
     Dates: start: 20210409, end: 202105
  3. BISOPROLOL [Suspect]
     Active Substance: BISOPROLOL
     Indication: Hypertension
     Dosage: 1 DF, 1X/DAY (ONE TABLET EVERY 24 HOURS)
     Route: 048
     Dates: start: 20210405, end: 202105
  4. ASPIRIN [Concomitant]
     Active Substance: ASPIRIN
     Indication: Prophylaxis
     Dosage: 1 DF, 1X/DAY (ONE TABLET PER DAY)
     Route: 048
     Dates: start: 20210405
  5. EDOXABAN [Concomitant]
     Active Substance: EDOXABAN
     Indication: Prophylaxis
     Dosage: 1 DF, 1X/DAY (1 TABLET PER DAY)
     Route: 048
     Dates: start: 20201014, end: 202105
  6. DAPAGLIFLOZIN [Concomitant]
     Active Substance: DAPAGLIFLOZIN
     Dosage: 1 DF, 1X/DAY (1 TABLET EVERY 24 HOURS)
     Route: 048
     Dates: start: 201812
  7. METFORMIN\VILDAGLIPTIN [Concomitant]
     Active Substance: METFORMIN\VILDAGLIPTIN
     Indication: Hypertension
     Dosage: 1 DF, 2X/DAY (1 TABLET EVERY 12 HOURS)
     Route: 048
     Dates: start: 201802
  8. TICAGRELOR [Concomitant]
     Active Substance: TICAGRELOR
     Dosage: 1 DF, 2X/DAY (1 TABLET EVERY 12 HOURS)
     Route: 048
     Dates: start: 20210405, end: 202105
  9. ATORVASTATIN [Concomitant]
     Active Substance: ATORVASTATIN
     Dosage: 1 DF, 1X/DAY (1 TABLET PER DAY)
     Route: 048
     Dates: start: 201405
  10. ATROALDO [Concomitant]
     Dosage: 2 DOSES EVERY 8 HOURS
     Route: 055
     Dates: start: 201904
  11. FUROSEMIDE [Concomitant]
     Active Substance: FUROSEMIDE
     Dosage: 1 DF, 1X/DAY (1 TABLET PER DAY)
     Route: 048
     Dates: start: 20210405

REACTIONS (1)
  - Hypotension [Recovered/Resolved]

NARRATIVE: CASE EVENT DATE: 20210503
